FAERS Safety Report 24545059 (Version 1)
Quarter: 2024Q4

REPORT INFORMATION
  Report Type: Spontaneous
  Country: US (occurrence: US)
  Receive Date: 20241024
  Receipt Date: 20241024
  Transmission Date: 20250115
  Serious: No
  Sender: BAYER HEALTHCARE LLC
  Company Number: US-BAYER-2024A150590

PATIENT
  Age: 30 Year
  Sex: Male

DRUGS (1)
  1. MIRALAX [Suspect]
     Active Substance: POLYETHYLENE GLYCOL 3350
     Indication: Gastrointestinal disorder
     Dosage: AS DIRECTED
     Route: 048
     Dates: start: 20241016, end: 20241019

REACTIONS (2)
  - Flatulence [Unknown]
  - Abdominal distension [Unknown]
